FAERS Safety Report 4982945-7 (Version None)
Quarter: 2006Q2

REPORT INFORMATION
  Report Type: 
  Country: None (occurrence: None)
  Receive Date: 20060420
  Receipt Date: 20060407
  Transmission Date: 20061013
  Serious: Yes (Hospitalization)
  Sender: FDA-Public Use
  Company Number: 200511957BWH

PATIENT
  Age: 73 Year
  Sex: Female
  Weight: 59.4212 kg

DRUGS (10)
  1. SORAFENIB [Suspect]
     Indication: METASTATIC RENAL CELL CARCINOMA
     Dosage: 400 MG, BID, ORAL
     Route: 048
     Dates: start: 20050812
  2. LISINOPRIL [Concomitant]
  3. TIMOLOL MALEATE [Concomitant]
  4. XALATAN [Concomitant]
  5. WOMENS VITAMIN [Concomitant]
  6. BONAMINE [Concomitant]
  7. LORAZEPAM [Concomitant]
  8. GRAVOL TAB [Concomitant]
  9. CLAFORAN [Concomitant]
  10. FLAGYL [Concomitant]

REACTIONS (3)
  - ELECTROLYTE IMBALANCE [None]
  - HEADACHE [None]
  - HYPERTENSION [None]
